FAERS Safety Report 7340051-0 (Version None)
Quarter: 2011Q1

REPORT INFORMATION
  Report Type: 
  Country: None (occurrence: None)
  Receive Date: 20110309
  Receipt Date: 20110225
  Transmission Date: 20110831
  Serious: Yes (Hospitalization, Disabling, Other)
  Sender: FDA-Public Use
  Company Number: BR-BAYER-201016271LA

PATIENT
  Sex: Male

DRUGS (13)
  1. BETAFERON [Suspect]
     Indication: RELAPSING-REMITTING MULTIPLE SCLEROSIS
     Dosage: BETAJECT
     Route: 058
     Dates: start: 20070302, end: 20091001
  2. BETAFERON [Suspect]
     Dosage: 9.6 MIU, QOD
     Route: 058
  3. LAMOTRIGINE [Concomitant]
     Indication: CENTRAL NERVOUS SYSTEM LESION
     Dosage: 1 DF, QD, 30MG
     Route: 048
     Dates: start: 20080101
  4. BETAFERON [Suspect]
     Dosage: BETAJECT
     Route: 058
     Dates: start: 20080101
  5. CARBAMAZEPINE [Concomitant]
     Indication: DEPRESSION
     Dosage: 200MG, 4 DF, QD
     Route: 048
     Dates: start: 20090801
  6. ANTIDEPRESSANTS [Concomitant]
     Indication: BIPOLAR DISORDER
     Dosage: 1 DF, UNK
     Route: 048
     Dates: start: 20080101
  7. AZATIOPRIN [Concomitant]
     Indication: INFECTION PROPHYLAXIS
  8. CARBAMAZEPINE [Concomitant]
     Indication: BIPOLAR DISORDER
     Dosage: 4 TABLETS / DAY
     Route: 048
     Dates: start: 20070801, end: 20100501
  9. BETAFERON [Suspect]
     Route: 058
     Dates: start: 20100708
  10. AZATIOPRIN [Concomitant]
     Indication: BIPOLAR DISORDER
     Dosage: 1 TABLET / DAY - AS USED DOSE: UNK
     Route: 048
     Dates: start: 20070801, end: 20080801
  11. CARBAMAZEPINE [Concomitant]
     Indication: CENTRAL NERVOUS SYSTEM LESION
  12. IBUPROFENO [Concomitant]
     Indication: PREMEDICATION
     Dosage: 1 DF, QOD
     Route: 048
     Dates: start: 20070101
  13. RIVOTRIL [Concomitant]
     Indication: INSOMNIA
     Dosage: 1 DF, QD, 2MG
     Route: 048
     Dates: start: 20080101

REACTIONS (17)
  - HYPOKINESIA [None]
  - PYREXIA [None]
  - MULTIPLE SCLEROSIS RELAPSE [None]
  - MUSCULAR WEAKNESS [None]
  - HEADACHE [None]
  - SYNCOPE [None]
  - NERVOUSNESS [None]
  - UNEVALUABLE EVENT [None]
  - BALANCE DISORDER [None]
  - PAIN [None]
  - DEPRESSION [None]
  - MULTIPLE SCLEROSIS [None]
  - MUSCLE SPASMS [None]
  - SEXUAL DYSFUNCTION [None]
  - MOTOR DYSFUNCTION [None]
  - BLINDNESS [None]
  - CHILLS [None]
